FAERS Safety Report 5462873-3 (Version None)
Quarter: 2007Q3

REPORT INFORMATION
  Report Type: 
  Country: None (occurrence: None)
  Receive Date: 20070920
  Receipt Date: 20070330
  Transmission Date: 20080115
  Serious: No
  Sender: FDA-Public Use
  Company Number: A0645168A

PATIENT
  Age: 29 Year
  Sex: Male

DRUGS (1)
  1. ABREVA [Suspect]
     Dates: start: 20070326, end: 20070328

REACTIONS (1)
  - APPLICATION SITE IRRITATION [None]
